FAERS Safety Report 4825218-5 (Version None)
Quarter: 2005Q4

REPORT INFORMATION
  Report Type: 
  Country: None (occurrence: None)
  Receive Date: 20051109
  Receipt Date: 20051026
  Transmission Date: 20060501
  Serious: Yes (Death)
  Sender: FDA-Public Use
  Company Number: 220005L05ITA

PATIENT
  Age: 6 Year
  Sex: Male

DRUGS (1)
  1. SOMATROPIN (SOMATROPIN) [Suspect]
     Dosage: 0.2 MG/KG, 1 IN 1 WEEKS, SUBCUTANEOUS
     Route: 058

REACTIONS (7)
  - ADENOIDAL HYPERTROPHY [None]
  - APNOEIC ATTACK [None]
  - BRONCHOPNEUMONIA [None]
  - CONDITION AGGRAVATED [None]
  - RESPIRATORY DISORDER [None]
  - SUDDEN DEATH [None]
  - TONSILLAR HYPERTROPHY [None]
